FAERS Safety Report 24776089 (Version 1)
Quarter: 2024Q4

REPORT INFORMATION
  Report Type: Spontaneous
  Country: RU (occurrence: RU)
  Receive Date: 20241226
  Receipt Date: 20241226
  Transmission Date: 20250115
  Serious: Yes (Life-Threatening, Hospitalization)
  Sender: SANDOZ
  Company Number: RU-SANDOZ-SDZ2024RU105209

PATIENT
  Sex: Female
  Weight: 95 kg

DRUGS (2)
  1. ACECLOFENAC [Suspect]
     Active Substance: ACECLOFENAC
     Indication: Rheumatoid arthritis
     Dosage: 100 MG 1TIME/DAY - PER OS
     Route: 048
     Dates: start: 201901, end: 20241213
  2. METHOTREXATE SODIUM [Suspect]
     Active Substance: METHOTREXATE SODIUM
     Indication: Rheumatoid arthritis
     Dosage: 15 MG 1 TIME/WEEK PER OS
     Route: 048
     Dates: start: 201901, end: 20241206

REACTIONS (3)
  - Pancytopenia [Recovering/Resolving]
  - Asthenia [Recovering/Resolving]
  - Dizziness [Recovering/Resolving]

NARRATIVE: CASE EVENT DATE: 20241217
